FAERS Safety Report 12218768 (Version 1)
Quarter: 2016Q1

REPORT INFORMATION
  Report Type: Spontaneous
  Country: US (occurrence: US)
  Receive Date: 20160329
  Receipt Date: 20160329
  Transmission Date: 20160526
  Serious: No
  Sender: FDA-Public Use
  Company Number: US-BAYER-2016-057979

PATIENT
  Age: 61 Year
  Sex: Female

DRUGS (1)
  1. ALEVE [Suspect]
     Active Substance: NAPROXEN SODIUM
     Indication: PRODUCT USED FOR UNKNOWN INDICATION
     Dosage: 2 DF, ONCE
     Route: 048
     Dates: start: 201603, end: 201603

REACTIONS (2)
  - Throat irritation [None]
  - Regurgitation [None]

NARRATIVE: CASE EVENT DATE: 201603
